FAERS Safety Report 11445604 (Version 3)
Quarter: 2015Q3

REPORT INFORMATION
  Report Type: Spontaneous
  Country: VN (occurrence: VN)
  Receive Date: 20150902
  Receipt Date: 20150922
  Transmission Date: 20151125
  Serious: Yes (Other)
  Sender: FDA-Public Use
  Company Number: VN-ROCHE-1629180

PATIENT
  Sex: Male

DRUGS (1)
  1. MIRCERA [Suspect]
     Active Substance: METHOXY POLYETHYLENE GLYCOL-EPOETIN BETA
     Indication: NEPHROGENIC ANAEMIA
     Dosage: TOTAL MONTHLY DOSE: 100 MCG
     Route: 065

REACTIONS (2)
  - Underdose [Unknown]
  - Haemoglobin decreased [Recovered/Resolved]
